FAERS Safety Report 5549673-0 (Version None)
Quarter: 2007Q4

REPORT INFORMATION
  Report Type: 
  Country: None (occurrence: None)
  Receive Date: 20071210
  Receipt Date: 20071203
  Transmission Date: 20080405
  Serious: Yes (Life-Threatening, Hospitalization)
  Sender: FDA-Public Use
  Company Number: 2007SP004023

PATIENT
  Age: 24 Year
  Sex: Female

DRUGS (8)
  1. LUNESTA [Suspect]
     Dosage: ORAL
     Route: 048
  2. LITHIUM CARBONATE [Suspect]
     Dosage: ORAL
     Route: 048
  3. EFFEXOR [Suspect]
     Dosage: ORAL
     Route: 048
  4. SEROQUEL [Suspect]
     Dosage: ORAL
     Route: 048
  5. CHLORPROMAZINE [Suspect]
     Dosage: ORAL
     Route: 048
  6. TOPAMAX [Suspect]
     Dosage: ORAL
     Route: 048
     Dates: end: 20070101
  7. CLONAZEPAM [Suspect]
     Dosage: ORAL
     Route: 048
  8. CLOZAPINE [Concomitant]

REACTIONS (9)
  - ACUTE RESPIRATORY DISTRESS SYNDROME [None]
  - ASPIRATION [None]
  - DEPRESSION [None]
  - DISEASE RECURRENCE [None]
  - LUNG DISORDER [None]
  - MULTIPLE DRUG OVERDOSE INTENTIONAL [None]
  - SCAR [None]
  - SUICIDE ATTEMPT [None]
  - WEIGHT INCREASED [None]
